FAERS Safety Report 9148595 (Version 1)
Quarter: 2013Q1

REPORT INFORMATION
  Report Type: Spontaneous
  Country: US (occurrence: None)
  Receive Date: 20130228
  Receipt Date: 20130228
  Transmission Date: 20140127
  Serious: No
  Sender: FDA-Public Use
  Company Number: None

PATIENT
  Age: 79 Year
  Sex: Male
  Weight: 88.7 kg

DRUGS (16)
  1. XARELTO 15MG JANSSEN [Suspect]
     Route: 048
     Dates: start: 20130102, end: 20130214
  2. METOPROLOL SUCCINATE [Concomitant]
  3. NOVOLIN 70/30 [Concomitant]
  4. ASPIRIN [Concomitant]
  5. ARTIFICIAL TEARS EYE OINTMENT [Concomitant]
  6. VITAMIN D [Concomitant]
  7. ZETIA [Concomitant]
  8. FENOFIBRATE [Concomitant]
  9. LISINOPRIL [Concomitant]
  10. FUROSEMIDE [Concomitant]
  11. FISH OIL [Concomitant]
  12. DOCUSATE [Concomitant]
  13. MULTIVITAMIN [Concomitant]
  14. ALLOPURINOL [Concomitant]
  15. ACETAMINOPHEN [Concomitant]
  16. ATRIAL FIBRILLATION WITH WARFARIN [Concomitant]

REACTIONS (3)
  - Contusion [None]
  - Pain in extremity [None]
  - Haemoptysis [None]
